FAERS Safety Report 7271599-5 (Version None)
Quarter: 2011Q1

REPORT INFORMATION
  Report Type: 
  Country: None (occurrence: None)
  Receive Date: 20110128
  Receipt Date: 20110128
  Transmission Date: 20110831
  Serious: Yes (Life-Threatening)
  Sender: FDA-Public Use
  Company Number: None

PATIENT
  Age: 48 Year
  Sex: Male
  Weight: 74.8435 kg

DRUGS (1)
  1. PROPECIA [Suspect]
     Indication: ANDROGENETIC ALOPECIA
     Dosage: 1MG DAILY PO
     Route: 048
     Dates: start: 20000601, end: 20031201

REACTIONS (3)
  - BREAST CANCER MALE [None]
  - BREAST CANCER STAGE II [None]
  - METASTASES TO LYMPH NODES [None]
